FAERS Safety Report 8920165 (Version 1)
Quarter: 2012Q4

REPORT INFORMATION
  Report Type: 
  Country: US (occurrence: US)
  Receive Date: 20121122
  Receipt Date: 20121122
  Transmission Date: 20130627
  Serious: Yes (Hospitalization, Other)
  Sender: FDA-Public Use
  Company Number: US-ROCHE-791854

PATIENT
  Sex: Male
  Weight: 54.48 kg

DRUGS (7)
  1. ACCUTANE [Suspect]
     Indication: ACNE
     Route: 065
     Dates: start: 2000, end: 2001
  2. ACCUTANE [Suspect]
     Route: 065
     Dates: start: 200101, end: 200205
  3. ACCUTANE [Suspect]
     Route: 065
     Dates: start: 200202, end: 200206
  4. ACCUTANE [Suspect]
     Route: 065
     Dates: start: 2003, end: 2004
  5. SOTRET [Suspect]
     Indication: ACNE
     Route: 065
     Dates: start: 2000, end: 2001
  6. SOTRET [Suspect]
     Route: 065
     Dates: start: 2001, end: 2002
  7. SOTRET [Suspect]
     Route: 065
     Dates: start: 2003, end: 2004

REACTIONS (8)
  - Inflammatory bowel disease [Unknown]
  - Colitis ulcerative [Unknown]
  - Crohn^s disease [Unknown]
  - Emotional distress [Unknown]
  - Intestinal haemorrhage [Unknown]
  - Depression [Unknown]
  - Dry skin [Unknown]
  - Lip dry [Unknown]
